FAERS Safety Report 23507042 (Version 1)
Quarter: 2024Q1

REPORT INFORMATION
  Report Type: Spontaneous
  Country: FR (occurrence: FR)
  Receive Date: 20240209
  Receipt Date: 20240209
  Transmission Date: 20240410
  Serious: Yes (Other)
  Sender: FDA-Public Use
  Company Number: FR-Merz Pharmaceuticals GmbH-24-00289

PATIENT
  Sex: Female

DRUGS (1)
  1. BOCOUTURE [Suspect]
     Active Substance: BOTULINUM TOXIN TYPE A
     Indication: Product used for unknown indication

REACTIONS (2)
  - Herpes ophthalmic [Recovered/Resolved]
  - Eye disorder [Recovered/Resolved]
